FAERS Safety Report 6055700-7 (Version None)
Quarter: 2009Q1

REPORT INFORMATION
  Report Type: 
  Country: None (occurrence: None)
  Receive Date: 20090126
  Receipt Date: 20090114
  Transmission Date: 20090719
  Serious: Yes (Other)
  Sender: FDA-Public Use
  Company Number: 0296

PATIENT
  Age: 94 Year
  Sex: Female

DRUGS (4)
  1. METHYLDOPA [Suspect]
     Indication: HYPERTENSION
     Dosage: 250 MG, PO
     Route: 048
     Dates: end: 20081017
  2. AMIODARONE HCL [Concomitant]
  3. ASPIRIN LYSINE [Concomitant]
  4. ESOMEPRAZOLE MAGNESIUM [Concomitant]

REACTIONS (2)
  - LYMPHOMA [None]
  - TOXIC SKIN ERUPTION [None]
